FAERS Safety Report 9719171 (Version 1)
Quarter: 2013Q4

REPORT INFORMATION
  Report Type: Spontaneous
  Country: JP (occurrence: JP)
  Receive Date: 20131127
  Receipt Date: 20131127
  Transmission Date: 20140711
  Serious: Yes (Hospitalization)
  Sender: FDA-Public Use
  Company Number: PHHY2013JP133357

PATIENT
  Age: 51 Year
  Sex: Male

DRUGS (12)
  1. IMIPRAMINE [Suspect]
     Indication: DEPRESSION
     Dosage: 150 MG/DAY FOR 4 YEARS
  2. IMIPRAMINE [Suspect]
     Dosage: 250 MG/DAY FOR 4 WEEKS
  3. CLOMIPRAMINE [Suspect]
     Indication: DEPRESSION
     Dosage: 150 MG/DAY FOR 4 WEEKS
  4. MILNACIPRAN [Suspect]
     Indication: DEPRESSION
     Dosage: 150 MG, PER DAY
  5. PAROXETINE [Suspect]
     Indication: DEPRESSION
     Dosage: 40 MG, PER DAY
  6. AMITRIPTYLINE [Suspect]
     Indication: DEPRESSION
     Dosage: 200 MG, PER DAY
  7. OLANZAPINE [Suspect]
     Indication: DEPRESSION
     Dosage: 5 MG, PER DAY
  8. PRAMIPEXOLE [Suspect]
     Indication: DEPRESSION
     Dosage: 2.625 MG, PER DAY
  9. TRIIODOTHYRONINE [Suspect]
     Indication: DEPRESSION
  10. LITHIUM CARBONATE [Suspect]
     Indication: DEPRESSION
     Dosage: 800 MG, PER DAY
  11. CABERGOLINE [Concomitant]
     Dosage: 1 MG/KG
  12. AMOXAPINE [Concomitant]
     Dosage: 150 MG, PER DAY

REACTIONS (6)
  - Hyperaesthesia [Unknown]
  - Depression [Recovered/Resolved]
  - Apathy [Unknown]
  - Fatigue [Unknown]
  - Dyskinesia [Unknown]
  - Drug ineffective [Unknown]
